FAERS Safety Report 18053489 (Version 1)
Quarter: 2020Q3

REPORT INFORMATION
  Report Type: Spontaneous
  Country: US (occurrence: US)
  Receive Date: 20200721
  Receipt Date: 20200721
  Transmission Date: 20201103
  Serious: No
  Sender: FDA-Public Use
  Company Number: None

PATIENT
  Age: 76 Year
  Sex: Male
  Weight: 78.93 kg

DRUGS (8)
  1. HYDROCORTISONE. [Concomitant]
     Active Substance: HYDROCORTISONE
  2. LISINOPRIL. [Concomitant]
     Active Substance: LISINOPRIL
  3. FLOMAX [Concomitant]
     Active Substance: TAMSULOSIN HYDROCHLORIDE
  4. INLYTA [Suspect]
     Active Substance: AXITINIB
     Route: 048
     Dates: start: 20190904
  5. PRAVASTATIN. [Concomitant]
     Active Substance: PRAVASTATIN
  6. XARELTO [Concomitant]
     Active Substance: RIVAROXABAN
  7. TYLENOL [Concomitant]
     Active Substance: ACETAMINOPHEN
  8. LEVOTHYROXINE. [Suspect]
     Active Substance: LEVOTHYROXINE

REACTIONS (3)
  - Pulmonary thrombosis [None]
  - Blood pressure increased [None]
  - Thyroid hormones decreased [None]
